FAERS Safety Report 6911941-5 (Version None)
Quarter: 2010Q3

REPORT INFORMATION
  Report Type: 
  Country: None (occurrence: None)
  Receive Date: 20100806
  Receipt Date: 20071015
  Transmission Date: 20110219
  Serious: No
  Sender: FDA-Public Use
  Company Number: US-PFIZER INC-2005102825

PATIENT
  Sex: Female
  Weight: 61.69 kg

DRUGS (6)
  1. DETROL LA [Suspect]
     Indication: HYPERTONIC BLADDER
     Dates: start: 20050704
  2. CALCIUM [Concomitant]
     Route: 065
  3. VITAMIN E [Concomitant]
     Route: 065
  4. CHONDROITIN/GLUCOSAMINE [Concomitant]
     Route: 065
  5. VICODIN [Concomitant]
     Route: 065
  6. CYMBALTA [Concomitant]
     Route: 065

REACTIONS (2)
  - DRUG INEFFECTIVE [None]
  - DRY MOUTH [None]
